FAERS Safety Report 8104749-9 (Version None)
Quarter: 2012Q1

REPORT INFORMATION
  Report Type: 
  Country: None (occurrence: None)
  Receive Date: 20120130
  Receipt Date: 20120119
  Transmission Date: 20120608
  Serious: Yes (Hospitalization, Other)
  Sender: FDA-Public Use
  Company Number: PHFR2011GB02456

PATIENT
  Sex: Male

DRUGS (4)
  1. NEUPOGEN [Suspect]
     Dosage: 300 UG, DAILY DOSE
     Route: 058
     Dates: start: 20110401
  2. CLOZARIL [Suspect]
     Indication: SCHIZOPHRENIA
     Dosage: 300 MG, QD
     Route: 048
     Dates: start: 20110330
  3. CLOZARIL [Suspect]
     Dosage: 425 MG, DAILY DOSE
     Route: 048
     Dates: start: 20110401
  4. ANTIPSYCHOTICS [Concomitant]

REACTIONS (6)
  - NEUTROPENIA [None]
  - WHITE BLOOD CELL COUNT DECREASED [None]
  - WHITE BLOOD CELL COUNT INCREASED [None]
  - MALAISE [None]
  - QUALITY OF LIFE DECREASED [None]
  - NEUTROPHIL COUNT INCREASED [None]
